FAERS Safety Report 8933785 (Version 2)
Quarter: 2013Q1

REPORT INFORMATION
  Report Type: Spontaneous
  Country: DE (occurrence: DE)
  Receive Date: 20121129
  Receipt Date: 20130111
  Transmission Date: 20140127
  Serious: Yes (Other)
  Sender: FDA-Public Use
  Company Number: DE-ELI_LILLY_AND_COMPANY-DE201211005642

PATIENT
  Sex: Male

DRUGS (7)
  1. BYETTA [Suspect]
     Dosage: UNK, UNKNOWN
     Route: 058
     Dates: start: 20120327, end: 20120927
  2. LANTUS [Concomitant]
     Dosage: 16 U, QD
  3. SPIRONOLACTON [Concomitant]
     Dosage: UNK UNK, QD
  4. PANTOZOL [Concomitant]
     Dosage: UNK, QD
  5. HEPA-MERZ                          /01390204/ [Concomitant]
     Dosage: UNK, BID
  6. LACTULOSE [Concomitant]
     Dosage: UNK, TID
  7. VITAMIN B12 [Concomitant]
     Dosage: UNK, QD

REACTIONS (1)
  - Blood bilirubin increased [Recovered/Resolved]
